FAERS Safety Report 17763753 (Version 1)
Quarter: 2020Q2

REPORT INFORMATION
  Report Type: Spontaneous
  Country: FR (occurrence: FR)
  Receive Date: 20200510
  Receipt Date: 20200510
  Transmission Date: 20200714
  Serious: Yes (Life-Threatening, Hospitalization, Other)
  Sender: FDA-Public Use
  Company Number: FR-CADILA HEALTHCARE LIMITED-FR-ZYDUS-027145

PATIENT

DRUGS (16)
  1. ZOPICLONE [Suspect]
     Active Substance: ZOPICLONE
     Indication: INSOMNIA
     Dosage: 7.5 MILLIGRAM,1TAB/DY, ORAL DRUG UNSPECIFIED FORM,(INTERVAL :1 DAYS)
     Route: 048
     Dates: start: 20120907
  2. ABILIFY [Suspect]
     Active Substance: ARIPIPRAZOLE
     Indication: PSYCHOTIC DISORDER
     Dosage: 10 MILLIGRAM,10 MG, UNK
     Route: 048
     Dates: start: 20120907, end: 20121019
  3. SERESTA [Suspect]
     Active Substance: OXAZEPAM
     Indication: ANXIETY
     Dosage: 50 MILLIGRAM,HALF A TABLET IN THE MORNING AND AT MID DAY AND 1 TAB IN THE EVENING.,(INTERVAL :1 DAYS
     Route: 048
     Dates: start: 20120907
  4. IMOVANE [Suspect]
     Active Substance: ZOPICLONE
     Indication: INSOMNIA
     Dosage: 7.5 MILLIGRAM,1TAB/DY, ORAL DRUG UNSPECIFIED FORM
     Route: 048
     Dates: start: 20120907
  5. ESCITALOPRAM [Suspect]
     Active Substance: ESCITALOPRAM OXALATE
     Indication: PRODUCT USED FOR UNKNOWN INDICATION
     Dosage: 10 MILLIGRAM,DOSE INCREASED TO 10 MG/DAY.  PREVIOUSLY 5MG.  1TAB/DY
     Route: 065
     Dates: end: 20121003
  6. OLANZAPINE. [Suspect]
     Active Substance: OLANZAPINE
     Indication: PRODUCT USED FOR UNKNOWN INDICATION
     Dosage: 15 MILLIGRAM,15 MG, UNK
     Route: 065
  7. METHYLDOPA. [Suspect]
     Active Substance: METHYLDOPA
     Indication: AFFECTIVE DISORDER
     Dosage: UNK ()
     Route: 048
     Dates: start: 20120914
  8. ANAFRANIL [Suspect]
     Active Substance: CLOMIPRAMINE HYDROCHLORIDE
     Indication: MAJOR DEPRESSION
     Dosage: 75 MILLIGRAM,DAILY DOSE INCREASED. ORAL DRUG UNSPECIFIED FORM,(INTERVAL :1 DAYS)
     Route: 048
     Dates: start: 20121004
  9. OLANZAPINE. [Suspect]
     Active Substance: OLANZAPINE
     Indication: PRODUCT USED FOR UNKNOWN INDICATION
     Dosage: 15 MILLIGRAM,15 MG, UNK
     Route: 065
  10. ZOPICLONE [Suspect]
     Active Substance: ZOPICLONE
     Indication: INSOMNIA
     Dosage: 7.5 MILLIGRAM,1TAB/DY,(INTERVAL :1 DAYS)
     Route: 048
     Dates: start: 20120907
  11. SEROPLEX [Suspect]
     Active Substance: ESCITALOPRAM OXALATE
     Indication: ANXIETY
     Dosage: UNK ()
     Route: 065
     Dates: end: 20121003
  12. SEROPLEX [Suspect]
     Active Substance: ESCITALOPRAM OXALATE
     Indication: MAJOR DEPRESSION
     Dosage: 10 MILLIGRAM,DOSE INCREASED TO 10 MG/DAY.  PREVIOUSLY 5MG.  1TAB/DY
     Route: 065
     Dates: end: 20121003
  13. SEROPLEX [Suspect]
     Active Substance: ESCITALOPRAM OXALATE
     Indication: MAJOR DEPRESSION
     Dosage: 5 MILLIGRAM,5 MG, QD
     Route: 065
  14. LEPTICUR [Suspect]
     Active Substance: TROPATEPINE HYDROCHLORIDE
     Indication: PRODUCT USED FOR UNKNOWN INDICATION
     Dosage: UNK ()
     Route: 065
  15. ZYPREXA [Suspect]
     Active Substance: OLANZAPINE
     Indication: PRODUCT USED FOR UNKNOWN INDICATION
     Dosage: 15 MILLIGRAM,15 MG, UNK
     Route: 065
  16. DEPAMIDE [Suspect]
     Active Substance: VALPROMIDE
     Indication: AFFECTIVE DISORDER
     Dosage: 300 MILLIGRAM,300 MG,  ORAL DRUG UNSPECIFIED FORM,(INTERVAL :1 DAYS)
     Route: 048
     Dates: start: 20120914

REACTIONS (9)
  - Anxiety [Recovered/Resolved]
  - Dysstasia [Recovered/Resolved]
  - Apathy [Recovered/Resolved]
  - Gait inability [Recovered/Resolved]
  - Insomnia [Recovered/Resolved]
  - Coordination abnormal [Unknown]
  - Asthenia [Recovered/Resolved]
  - Off label use [Unknown]
  - Suicide attempt [Recovered/Resolved]

NARRATIVE: CASE EVENT DATE: 2012
